FAERS Safety Report 9461225 (Version 3)
Quarter: 2013Q4

REPORT INFORMATION
  Report Type: Spontaneous
  Country: BE (occurrence: BE)
  Receive Date: 20130816
  Receipt Date: 20131002
  Transmission Date: 20140711
  Serious: Yes (Other)
  Sender: FDA-Public Use
  Company Number: BE-JNJFOC-20130800549

PATIENT
  Age: 43 Year
  Sex: Male

DRUGS (1)
  1. NICORETTE SPRAY [Suspect]
     Indication: PRODUCT USED FOR UNKNOWN INDICATION
     Dosage: 6 DOSE FOR FIRST DAY AND 7 DOSES ON SECOND DAY
     Route: 048
     Dates: start: 201308

REACTIONS (2)
  - Herpes simplex [Recovered/Resolved]
  - Hiccups [Recovered/Resolved]
